FAERS Safety Report 12818048 (Version 2)
Quarter: 2016Q4

REPORT INFORMATION
  Report Type: Spontaneous
  Country: BR (occurrence: BR)
  Receive Date: 20161005
  Receipt Date: 20161107
  Transmission Date: 20170207
  Serious: Yes (Other)
  Sender: FDA-Public Use
  Company Number: PHHY2016BR134791

PATIENT
  Age: 35 Year
  Sex: Female

DRUGS (1)
  1. DESOGESTREL [Suspect]
     Active Substance: DESOGESTREL
     Indication: MENSTRUATION IRREGULAR
     Dosage: 0.075 MG, UNK
     Route: 048
     Dates: end: 20160827

REACTIONS (2)
  - Drug ineffective [Unknown]
  - Off label use [Unknown]
